FAERS Safety Report 9518364 (Version 1)
Quarter: 2013Q3

REPORT INFORMATION
  Report Type: Spontaneous
  Country: US (occurrence: None)
  Receive Date: 20130910
  Receipt Date: 20130910
  Transmission Date: 20140515
  Serious: Yes (Death)
  Sender: FDA-Public Use
  Company Number: FK201304153

PATIENT
  Age: 12 Year
  Sex: Female

DRUGS (7)
  1. IRINOTECAN [Suspect]
     Indication: ALVEOLAR RHABDOMYOSARCOMA
  2. TOPOTECAN [Suspect]
     Indication: ALVEOLAR RHABDOMYOSARCOMA
  3. ETOPOSIDE [Suspect]
     Indication: ALVEOLAR RHABDOMYOSARCOMA
  4. PEMETREXED [Suspect]
  5. CYCLOPHOSPHAMIDE [Suspect]
     Indication: ALVEOLAR RHABDOMYOSARCOMA
  6. TEMOZOLOMIDE [Suspect]
     Indication: ALVEOLAR RHABDOMYOSARCOMA
  7. VINCRISTINE [Suspect]
     Indication: ALVEOLAR RHABDOMYOSARCOMA

REACTIONS (5)
  - Neutropenic colitis [None]
  - Intestinal perforation [None]
  - Disease progression [None]
  - Alveolar rhabdomyosarcoma [None]
  - Disease recurrence [None]
